FAERS Safety Report 6647000-9 (Version None)
Quarter: 2010Q1

REPORT INFORMATION
  Report Type: 
  Country: None (occurrence: None)
  Receive Date: 20100323
  Receipt Date: 20100318
  Transmission Date: 20100710
  Serious: Yes (Death, Other)
  Sender: FDA-Public Use
  Company Number: FR-CELGENEUS-056-CCAZA-10031786

PATIENT

DRUGS (2)
  1. AZACITIDINE INJECTABLE [Suspect]
     Route: 058
  2. ARA-C [Suspect]
     Route: 065

REACTIONS (4)
  - ANAEMIA [None]
  - DEATH [None]
  - DISEASE PROGRESSION [None]
  - THROMBOCYTOPENIA [None]
